FAERS Safety Report 5752374-7 (Version None)
Quarter: 2008Q2

REPORT INFORMATION
  Report Type: 
  Country: None (occurrence: None)
  Receive Date: 20080529
  Receipt Date: 20080519
  Transmission Date: 20081010
  Serious: Yes (Congenital Anomaly)
  Sender: FDA-Public Use
  Company Number: A0681013A

PATIENT
  Sex: Male

DRUGS (5)
  1. PAXIL [Suspect]
     Indication: DEPRESSION
     Dosage: 30MG TWICE PER DAY
     Dates: start: 19980101, end: 20000101
  2. PROVENTIL [Concomitant]
     Dates: start: 19990201, end: 20000101
  3. VITAMIN TAB [Concomitant]
     Dates: start: 19990501, end: 20000201
  4. PROCHLORPERAZINE [Concomitant]
     Dates: start: 19990601, end: 19990801
  5. ZOFRAN [Concomitant]
     Dates: start: 19990701, end: 19990801

REACTIONS (4)
  - DRUG EXPOSURE DURING PREGNANCY [None]
  - HYDRONEPHROSIS [None]
  - MULTIPLE CONGENITAL ABNORMALITIES [None]
  - RENAL DYSPLASIA [None]
